FAERS Safety Report 17967229 (Version 1)
Quarter: 2020Q2

REPORT INFORMATION
  Report Type: Spontaneous
  Country: US (occurrence: US)
  Receive Date: 20200630
  Receipt Date: 20200630
  Transmission Date: 20200714
  Serious: No
  Sender: FDA-Public Use
  Company Number: None

PATIENT
  Age: 51 Year
  Sex: Male
  Weight: 87.9 kg

DRUGS (10)
  1. METHYLPREDNISOLONE 40 MG IV Q12H [Concomitant]
     Dates: start: 20200625
  2. ZINC SULFATE 220 MG PO DAILY [Concomitant]
     Dates: start: 20200626, end: 20200630
  3. ASCORBIC ACID 500 MG PO BID [Concomitant]
     Dates: start: 20200625
  4. CEFTRIAXONE 1 GM IV Q24H [Concomitant]
     Dates: start: 20200625, end: 20200628
  5. REMDESIVIR. [Suspect]
     Active Substance: REMDESIVIR
     Indication: COVID-19 PNEUMONIA
     Route: 042
     Dates: start: 20200525, end: 20200528
  6. AZITHROMYCIN 500 MG IV Q24H [Concomitant]
     Dates: start: 20200625, end: 20200629
  7. ENOXAPARIN 50 MG SQ Q12H [Concomitant]
     Dates: start: 20200626
  8. GUAIFENESIN 200 MG PO Q8H [Concomitant]
     Dates: start: 20200625, end: 20200628
  9. RAMELTEON 8 MG PO QHS [Concomitant]
     Dates: start: 20200627
  10. FAMOTIDINE 20 MG PO Q12H [Concomitant]
     Dates: start: 20200625

REACTIONS (1)
  - Liver function test increased [None]

NARRATIVE: CASE EVENT DATE: 20200628
